FAERS Safety Report 4348960-1 (Version None)
Quarter: 2004Q2

REPORT INFORMATION
  Report Type: 
  Country: None (occurrence: None)
  Receive Date: 20040423
  Receipt Date: 20040416
  Transmission Date: 20050107
  Serious: Yes (Hospitalization, Disabling)
  Sender: FDA-Public Use
  Company Number: US-JNJFOC-20040403949

PATIENT
  Age: 23 Year
  Sex: Female
  Weight: 61.2356 kg

DRUGS (4)
  1. TOPAMAX [Suspect]
     Indication: CONVULSION
     Dosage: 200 MG
     Dates: start: 20010101
  2. LAMICTAL [Concomitant]
  3. VITAMINS (VITAMINS) [Concomitant]
  4. CLONAZEPAM [Concomitant]

REACTIONS (2)
  - AMNESIA [None]
  - CONVULSION [None]
